FAERS Safety Report 8616078-5 (Version None)
Quarter: 2012Q3

REPORT INFORMATION
  Report Type: 
  Country: None (occurrence: None)
  Receive Date: 20120823
  Receipt Date: 20120822
  Transmission Date: 20120928
  Serious: Yes (Other)
  Sender: FDA-Public Use
  Company Number: US-PFIZER INC-2012206918

PATIENT
  Age: 67 Year
  Sex: Female
  Weight: 72.109 kg

DRUGS (1)
  1. CELEBREX [Suspect]
     Indication: ARTHRITIS
     Dosage: 200 MG, 1X/DAY
     Route: 048

REACTIONS (3)
  - NEUROPATHY PERIPHERAL [None]
  - DIABETES MELLITUS [None]
  - TRANSIENT ISCHAEMIC ATTACK [None]
